FAERS Safety Report 8293418-0 (Version None)
Quarter: 2012Q2

REPORT INFORMATION
  Report Type: 
  Country: None (occurrence: None)
  Receive Date: 20120417
  Receipt Date: 20120126
  Transmission Date: 20120825
  Serious: No
  Sender: FDA-Public Use
  Company Number: US-ASTRAZENECA-2012SE05645

PATIENT
  Age: 50 Year
  Sex: Female
  Weight: 77.1 kg

DRUGS (10)
  1. GEMFIBROZIL [Concomitant]
  2. METFORMIN HCL [Concomitant]
  3. NEXIUM [Suspect]
     Route: 048
  4. HYDROCHLOROTHIAZIDE [Concomitant]
  5. LISINOPRIL [Concomitant]
  6. LEVEMRI INSULIN [Concomitant]
  7. CYMBALTA [Concomitant]
  8. SEROQUEL XR [Suspect]
     Indication: SLEEP DISORDER
     Route: 048
  9. SYNTHROID [Concomitant]
  10. HUMOLOG INSULIN [Concomitant]

REACTIONS (4)
  - DRUG DOSE OMISSION [None]
  - OFF LABEL USE [None]
  - INSOMNIA [None]
  - BIPOLAR DISORDER [None]
